FAERS Safety Report 9994556 (Version 2)
Quarter: 2014Q1

REPORT INFORMATION
  Report Type: Spontaneous
  Country: AU (occurrence: AU)
  Receive Date: 20140311
  Receipt Date: 20140318
  Transmission Date: 20141002
  Serious: Yes (Other)
  Sender: FDA-Public Use
  Company Number: AU-ABBVIE-14P-008-1208812-00

PATIENT
  Sex: 0

DRUGS (2)
  1. RITONAVIR [Suspect]
     Indication: HIV INFECTION
  2. ATAZANAVIR SULFATE [Suspect]
     Indication: HIV INFECTION

REACTIONS (1)
  - Lung neoplasm malignant [Unknown]
